FAERS Safety Report 20878089 (Version 3)
Quarter: 2024Q1

REPORT INFORMATION
  Report Type: Spontaneous
  Country: RU (occurrence: None)
  Receive Date: 20220526
  Receipt Date: 20240124
  Transmission Date: 20240410
  Serious: Yes (Other)
  Sender: FDA-Public Use
  Company Number: RU-ROCHE-3100138

PATIENT
  Age: 47 Year

DRUGS (1)
  1. HEMLIBRA [Suspect]
     Active Substance: EMICIZUMAB-KXWH
     Indication: Factor VIII deficiency
     Dosage: DOSING REGIMEN NOT REPORTED
     Route: 065

REACTIONS (3)
  - Cerebral haematoma [Unknown]
  - Craniocerebral injury [Unknown]
  - Head injury [Unknown]

NARRATIVE: CASE EVENT DATE: 20220401
